FAERS Safety Report 25150878 (Version 1)
Quarter: 2025Q2

REPORT INFORMATION
  Report Type: Spontaneous
  Country: HU (occurrence: HU)
  Receive Date: 20250402
  Receipt Date: 20250402
  Transmission Date: 20250716
  Serious: Yes (Death, Hospitalization, Other)
  Sender: ASTELLAS
  Company Number: HU-ASTELLAS-2025-AER-018363

PATIENT
  Age: 50 Year
  Sex: Male

DRUGS (3)
  1. GILTERITINIB [Suspect]
     Active Substance: GILTERITINIB
     Indication: Acute myeloid leukaemia recurrent
     Route: 065
     Dates: start: 202405, end: 202407
  2. DAUNORUBICIN HYDROCHLORIDE [Concomitant]
     Active Substance: DAUNORUBICIN HYDROCHLORIDE
     Indication: Acute myeloid leukaemia recurrent
     Route: 065
     Dates: start: 202405
  3. CYTARABINE [Concomitant]
     Active Substance: CYTARABINE
     Indication: Acute myeloid leukaemia recurrent
     Dosage: 200 MG FOR 1 DAY
     Route: 065
     Dates: start: 202405

REACTIONS (8)
  - Sepsis [Fatal]
  - Monocytosis [Unknown]
  - Neutropenia [Unknown]
  - Pancytopenia [Unknown]
  - Haematoma [Unknown]
  - Oral fungal infection [Unknown]
  - Otitis media [Unknown]
  - Pyrexia [Unknown]

NARRATIVE: CASE EVENT DATE: 20240701
